FAERS Safety Report 8789019 (Version 1)
Quarter: 2012Q4

REPORT INFORMATION
  Report Type: 
  Country: US (occurrence: US)
  Receive Date: 20120916
  Receipt Date: 20120916
  Transmission Date: 20130627
  Serious: No
  Sender: FDA-Public Use
  Company Number: US-009507513-1209USA004395

PATIENT

DRUGS (1)
  1. VYTORIN [Suspect]
     Dosage: 10/10mg, qd
     Route: 048

REACTIONS (1)
  - Myalgia [Recovered/Resolved]
